FAERS Safety Report 6539964-9 (Version None)
Quarter: 2010Q1

REPORT INFORMATION
  Report Type: 
  Country: None (occurrence: None)
  Receive Date: 20100115
  Receipt Date: 20100104
  Transmission Date: 20100710
  Serious: Yes (Other)
  Sender: FDA-Public Use
  Company Number: PHHY2010BR00783

PATIENT
  Sex: Male

DRUGS (1)
  1. TRILEPTAL [Suspect]
     Indication: CONVULSION
     Dosage: UNK
     Route: 048
     Dates: start: 20060707, end: 20091127

REACTIONS (12)
  - ASTHENIA [None]
  - DECREASED APPETITE [None]
  - EPISTAXIS [None]
  - GAIT DISTURBANCE [None]
  - HYPERACUSIS [None]
  - INTRACRANIAL PRESSURE INCREASED [None]
  - IRRITABILITY [None]
  - MIGRAINE [None]
  - MYALGIA [None]
  - PARAESTHESIA [None]
  - PHOTOPHOBIA [None]
  - TENDON PAIN [None]
